FAERS Safety Report 5976902-1 (Version None)
Quarter: 2008Q4

REPORT INFORMATION
  Report Type: 
  Country: None (occurrence: None)
  Receive Date: 20081202
  Receipt Date: 20081202
  Transmission Date: 20090506
  Serious: Yes (Other)
  Sender: FDA-Public Use
  Company Number: None

PATIENT
  Age: 42 Year
  Sex: Female
  Weight: 79.3795 kg

DRUGS (1)
  1. ISOSORBIDE MONONITRATE [Suspect]
     Indication: CORONARY ARTERY DISEASE
     Dosage: 1 TABLET 2 PER DAY
     Dates: start: 20081018, end: 20081126

REACTIONS (7)
  - CARDIAC DISORDER [None]
  - DYSPNOEA [None]
  - FEELING ABNORMAL [None]
  - MALAISE [None]
  - MUSCULOSKELETAL PAIN [None]
  - PAIN [None]
  - PRODUCT QUALITY ISSUE [None]
